FAERS Safety Report 12115371 (Version 1)
Quarter: 2016Q1

REPORT INFORMATION
  Report Type: Spontaneous
  Country: US (occurrence: US)
  Receive Date: 20160225
  Receipt Date: 20160225
  Transmission Date: 20160526
  Serious: No
  Sender: FDA-Public Use
  Company Number: US-FRI-1000080235

PATIENT
  Age: 32 Year
  Sex: Female

DRUGS (1)
  1. VIIBRYD [Suspect]
     Active Substance: VILAZODONE HYDROCHLORIDE
     Indication: DEPRESSION
     Dosage: 10MG WK1, 20MG WK2, THEN 40MG FROM WK3
     Route: 048
     Dates: start: 20150918

REACTIONS (1)
  - Auditory disorder [Not Recovered/Not Resolved]
